FAERS Safety Report 13690218 (Version 1)
Quarter: 2017Q2

REPORT INFORMATION
  Report Type: Spontaneous
  Country: US (occurrence: US)
  Receive Date: 20170626
  Receipt Date: 20170626
  Transmission Date: 20170830
  Serious: Yes (Hospitalization, Other)
  Sender: FDA-Public Use
  Company Number: US-TEVA-780915USA

PATIENT
  Age: 57 Year
  Sex: Female

DRUGS (2)
  1. DIPHENHYDRAMINE. [Suspect]
     Active Substance: DIPHENHYDRAMINE
     Indication: SLEEP DISORDER
     Route: 048
  2. DIPHENHYDRAMINE. [Suspect]
     Active Substance: DIPHENHYDRAMINE
     Indication: INTENTIONAL OVERDOSE
     Dosage: 20-30 TABLETS IF 25MG
     Route: 048

REACTIONS (5)
  - Restless legs syndrome [Recovering/Resolving]
  - Intentional overdose [Recovering/Resolving]
  - Mental status changes [Recovering/Resolving]
  - Hypersomnia [Recovering/Resolving]
  - Loss of consciousness [Recovering/Resolving]
